FAERS Safety Report 5531518-6 (Version None)
Quarter: 2007Q4

REPORT INFORMATION
  Report Type: 
  Country: None (occurrence: None)
  Receive Date: 20071203
  Receipt Date: 20071121
  Transmission Date: 20080405
  Serious: Yes (Other)
  Sender: FDA-Public Use
  Company Number: US-KINGPHARMUSA00001-K200701509

PATIENT

DRUGS (5)
  1. ALTACE [Suspect]
     Dosage: 1.25 MG, QD
     Route: 048
     Dates: start: 20071008, end: 20071029
  2. AMLODIPINE [Concomitant]
     Dosage: 5 MG, UNK
     Route: 048
  3. PAROXETINE [Concomitant]
  4. RABEPRAZOLE SODIUM [Concomitant]
  5. ROSUVASTATIN [Concomitant]
     Dosage: 10 MG, UNK
     Route: 048

REACTIONS (6)
  - DEPRESSION [None]
  - ERYTHEMA [None]
  - LETHARGY [None]
  - MYALGIA [None]
  - PRURITUS [None]
  - RHINITIS [None]
